FAERS Safety Report 7901782-4 (Version None)
Quarter: 2011Q4

REPORT INFORMATION
  Report Type: 
  Country: None (occurrence: None)
  Receive Date: 20111108
  Receipt Date: 20111101
  Transmission Date: 20120403
  Serious: Yes (Other)
  Sender: FDA-Public Use
  Company Number: US-JNJFOC-20110811482

PATIENT
  Sex: Male
  Weight: 56.7 kg

DRUGS (2)
  1. TYLENOL-500 [Suspect]
     Indication: PRODUCT USED FOR UNKNOWN INDICATION
  2. TYLENOL-500 [Suspect]

REACTIONS (1)
  - INTENTIONAL OVERDOSE [None]
